FAERS Safety Report 16867568 (Version 1)
Quarter: 2019Q3

REPORT INFORMATION
  Report Type: Spontaneous
  Country: DE (occurrence: DE)
  Receive Date: 20190930
  Receipt Date: 20190930
  Transmission Date: 20191005
  Serious: Yes (Hospitalization)
  Sender: FDA-Public Use
  Company Number: DE-MYLANLABS-2019M1089998

PATIENT
  Age: 53 Year
  Sex: Male

DRUGS (18)
  1. LEPONEX [Interacting]
     Active Substance: CLOZAPINE
     Dosage: 37.5 MILLIGRAM, QD
     Dates: start: 20090829, end: 20090830
  2. LEPONEX [Interacting]
     Active Substance: CLOZAPINE
     Dosage: 25 MILLIGRAM, QD
     Dates: start: 20090921, end: 20090925
  3. ZYPREXA [Interacting]
     Active Substance: OLANZAPINE
     Dosage: 20 MILLIGRAM, QD
     Dates: start: 20090820, end: 20090825
  4. ATOSIL                             /00033002/ [Interacting]
     Active Substance: PROMETHAZINE HYDROCHLORIDE
     Indication: PRODUCT USED FOR UNKNOWN INDICATION
     Dosage: 75 MILLIGRAM, QD
     Dates: start: 20090810, end: 20090906
  5. ZYPREXA [Interacting]
     Active Substance: OLANZAPINE
     Dosage: 30 MILLIGRAM, QD
     Dates: start: 20090826, end: 20090830
  6. ZYPREXA [Interacting]
     Active Substance: OLANZAPINE
     Dosage: 20 MILLIGRAM, QD
     Dates: start: 20090831, end: 20090902
  7. ZYPREXA [Interacting]
     Active Substance: OLANZAPINE
     Dosage: 10 MILLIGRAM, QD
     Dates: start: 20090903, end: 20090906
  8. LEPONEX [Suspect]
     Active Substance: CLOZAPINE
     Indication: PRODUCT USED FOR UNKNOWN INDICATION
     Dosage: 12.5 MILLIGRAM, QD
     Dates: start: 20090828, end: 20090828
  9. LEPONEX [Interacting]
     Active Substance: CLOZAPINE
     Dosage: 200 MILLIGRAM, QD
     Dates: start: 20090904, end: 20090906
  10. LEPONEX [Interacting]
     Active Substance: CLOZAPINE
     Dosage: 50 MILLIGRAM, QD
     Dates: start: 20090918, end: 20090920
  11. SERDOLECT [Concomitant]
     Active Substance: SERTINDOLE
     Dosage: 8 MILLIGRAM, QD
     Dates: start: 20090924
  12. LEPONEX [Interacting]
     Active Substance: CLOZAPINE
     Dosage: 75 MILLIGRAM, QD
     Dates: start: 20090907, end: 20090917
  13. ZYPREXA [Interacting]
     Active Substance: OLANZAPINE
     Indication: PRODUCT USED FOR UNKNOWN INDICATION
     Dosage: 10 MILLIGRAM, QD
     Dates: start: 20090817, end: 20090819
  14. SERDOLECT [Concomitant]
     Active Substance: SERTINDOLE
     Dosage: 4 MILLIGRAM, QD
     Dates: start: 20090918, end: 20090923
  15. LEPONEX [Interacting]
     Active Substance: CLOZAPINE
     Dosage: 150 MILLIGRAM, QD
     Dates: start: 20090903
  16. CIPRAMIL                           /00582602/ [Concomitant]
     Active Substance: CITALOPRAM HYDROBROMIDE
     Dosage: 10 MILLIGRAM, QD
     Dates: start: 20090807, end: 20090906
  17. LEPONEX [Interacting]
     Active Substance: CLOZAPINE
     Dosage: 62.5 MILLIGRAM, QD
     Dates: start: 20090831, end: 20090831
  18. LEPONEX [Interacting]
     Active Substance: CLOZAPINE
     Dosage: 100 MILLIGRAM, QD
     Dates: start: 20090902

REACTIONS (1)
  - Epilepsy [Recovered/Resolved]

NARRATIVE: CASE EVENT DATE: 20090906
